FAERS Safety Report 6912585-1 (Version None)
Quarter: 2010Q3

REPORT INFORMATION
  Report Type: 
  Country: None (occurrence: None)
  Receive Date: 20100806
  Receipt Date: 20080724
  Transmission Date: 20110219
  Serious: No
  Sender: FDA-Public Use
  Company Number: US-PFIZER INC-2008062759

PATIENT
  Sex: Male
  Weight: 80.454 kg

DRUGS (2)
  1. DETROL LA [Suspect]
     Indication: INCONTINENCE
     Route: 048
     Dates: start: 20080701
  2. DIAZEPAM [Concomitant]

REACTIONS (1)
  - DIARRHOEA [None]
